FAERS Safety Report 7994612-6 (Version None)
Quarter: 2011Q4

REPORT INFORMATION
  Report Type: 
  Country: None (occurrence: None)
  Receive Date: 20111220
  Receipt Date: 20111213
  Transmission Date: 20120403
  Serious: Yes (Other)
  Sender: FDA-Public Use
  Company Number: CA-US-EMD SERONO, INC.-7094881

PATIENT
  Sex: Female

DRUGS (8)
  1. CALCIUM [Concomitant]
  2. LIPITOR [Concomitant]
  3. REBIF [Suspect]
     Indication: PRODUCT USED FOR UNKNOWN INDICATION
     Route: 058
     Dates: start: 20051109, end: 20101101
  4. TRAZEPAM [Concomitant]
  5. MULTI-VITAMINS [Concomitant]
  6. MELOXICAM [Concomitant]
  7. KELP [Concomitant]
  8. LOVAZA [Concomitant]

REACTIONS (1)
  - IDIOPATHIC THROMBOCYTOPENIC PURPURA [None]
